FAERS Safety Report 5382059-0 (Version None)
Quarter: 2007Q2

REPORT INFORMATION
  Report Type: 
  Country: None (occurrence: None)
  Receive Date: 20070629
  Receipt Date: 20070228
  Transmission Date: 20071010
  Serious: Yes (Other)
  Sender: FDA-Public Use
  Company Number: PHEH2007US02520

PATIENT
  Sex: Male

DRUGS (1)
  1. EXJADE [Suspect]
     Dosage: 20 MG/KG, QD, ORAL
     Route: 048
     Dates: start: 20061201, end: 20070228

REACTIONS (1)
  - BLOOD CREATININE INCREASED [None]
